FAERS Safety Report 10348722 (Version 1)
Quarter: 2014Q3

REPORT INFORMATION
  Report Type: Spontaneous
  Country: CH (occurrence: CH)
  Receive Date: 20140729
  Receipt Date: 20140729
  Transmission Date: 20150326
  Serious: Yes (Life-Threatening)
  Sender: FDA-Public Use
  Company Number: PHHY2014CH090912

PATIENT
  Age: 39 Year
  Sex: Female
  Weight: 70 kg

DRUGS (33)
  1. FUROSEMID [Suspect]
     Active Substance: FUROSEMIDE
     Dosage: 10 MG
     Route: 040
  2. FUNGIZONE [Suspect]
     Active Substance: AMPHOTERICIN B
     Indication: PSEUDOMONAS INFECTION
     Dosage: 15 MG
     Route: 055
     Dates: end: 20140702
  3. DISOPRIVAN [Suspect]
     Active Substance: PROPOFOL
     Dosage: 150 MG, QD
     Route: 041
  4. AZACTAM [Suspect]
     Active Substance: AZTREONAM
     Indication: GENERAL PHYSICAL HEALTH DETERIORATION
     Dosage: 2200 MG, QD
     Route: 041
     Dates: start: 20140701
  5. CASPOFUNGIN [Concomitant]
     Active Substance: CASPOFUNGIN
     Indication: SUPERINFECTION
  6. CASPOFUNGIN [Concomitant]
     Active Substance: CASPOFUNGIN
     Indication: PSEUDOMONAS INFECTION
  7. VORICONAZOLE. [Suspect]
     Active Substance: VORICONAZOLE
     Indication: SUPERINFECTION
     Dosage: 200 MG, BID
     Route: 048
  8. COLIMICIN [Suspect]
     Active Substance: COLISTIN SULFATE
     Dosage: 2 MIU, TID
     Route: 041
  9. VORICONAZOLE. [Suspect]
     Active Substance: VORICONAZOLE
     Indication: BRONCHOPULMONARY ASPERGILLOSIS
     Dosage: UKN
     Dates: start: 201308, end: 20140612
  10. TAZOBAC [Suspect]
     Active Substance: PIPERACILLIN SODIUM\TAZOBACTAM SODIUM
     Indication: GENERAL PHYSICAL HEALTH DETERIORATION
     Dosage: 4.5 G, TID
     Route: 041
  11. TOBI [Suspect]
     Active Substance: TOBRAMYCIN
     Indication: RESPIRATORY DISORDER
     Dosage: 300 MG, BID
     Route: 055
     Dates: start: 20140701
  12. TOBI [Suspect]
     Active Substance: TOBRAMYCIN
     Indication: ASPERGILLUS INFECTION
  13. VORICONAZOLE. [Suspect]
     Active Substance: VORICONAZOLE
     Indication: PSEUDOMONAS INFECTION
  14. VORICONAZOLE. [Suspect]
     Active Substance: VORICONAZOLE
     Indication: PNEUMONIA
  15. SINTENYL [Suspect]
     Active Substance: FENTANYL CITRATE
     Dosage: 400 UG PER 24 HOURS
     Route: 040
  16. MIDAZOLAM [Suspect]
     Active Substance: MIDAZOLAM\MIDAZOLAM HYDROCHLORIDE
     Dosage: 5 MG, QH
     Route: 041
  17. CASPOFUNGIN [Concomitant]
     Active Substance: CASPOFUNGIN
     Indication: BRONCHOPULMONARY ASPERGILLOSIS
     Dosage: UNK UKN, UNK
     Dates: start: 201308, end: 20140612
  18. COLIMYCIN [Concomitant]
     Indication: GENERAL PHYSICAL HEALTH DETERIORATION
     Dosage: UNK UKN, UNK
  19. VORICONAZOLE. [Suspect]
     Active Substance: VORICONAZOLE
     Indication: MULTIPLE-DRUG RESISTANCE
  20. TAVEGYL [Suspect]
     Active Substance: CLEMASTINE FUMARATE
     Dosage: 2 MG, QD
     Route: 040
     Dates: start: 20140701
  21. HEPARIN [Suspect]
     Active Substance: HEPARIN SODIUM
     Dosage: 5000 IU, QD
     Route: 041
  22. MYCOPHENOLATE [Concomitant]
     Active Substance: MYCOPHENOLIC ACID
     Dosage: UNK
  23. CASPOFUNGIN [Concomitant]
     Active Substance: CASPOFUNGIN
     Indication: MULTIPLE-DRUG RESISTANCE
  24. TOBI [Suspect]
     Active Substance: TOBRAMYCIN
     Indication: PSEUDOMONAS INFECTION
  25. ESOMEPRAZOLE [Suspect]
     Active Substance: ESOMEPRAZOLE
     Dosage: 40 MG, QD
     Route: 040
  26. PREDNISONE. [Suspect]
     Active Substance: PREDNISONE
     Dosage: 10 MG, QD
     Route: 048
  27. ACTRAPID [Suspect]
     Active Substance: INSULIN HUMAN
     Dosage: UKN
     Route: 041
  28. BACTRIM [Suspect]
     Active Substance: SULFAMETHOXAZOLE\TRIMETHOPRIM
     Dosage: 480 MG, QW3
     Route: 048
  29. MEROPENEM. [Concomitant]
     Active Substance: MEROPENEM
     Indication: PNEUMONIA
     Dosage: UNK UKN, UNK
  30. TACROLIMUS. [Suspect]
     Active Substance: TACROLIMUS
     Dosage: 0.7 MG, BID
     Route: 048
  31. FUNGIZONE [Suspect]
     Active Substance: AMPHOTERICIN B
     Indication: RESPIRATORY DISORDER
     Dosage: 350 MG, OVER 2 HOURS WAS PRESCRIBED,  5 MG/KG (WEIGHT 70 KG)
     Route: 041
     Dates: start: 20140702
  32. FUNGIZONE [Suspect]
     Active Substance: AMPHOTERICIN B
     Indication: ASPERGILLUS INFECTION
  33. MORPHIN [Suspect]
     Active Substance: MORPHINE
     Dosage: 4 MG, QH
     Route: 041

REACTIONS (9)
  - Liver injury [Not Recovered/Not Resolved]
  - Thrombocytopenia [Not Recovered/Not Resolved]
  - Ventricular tachycardia [Recovered/Resolved]
  - Cardiac arrest [Recovered/Resolved]
  - Hyperkalaemia [Recovered/Resolved]
  - Renal failure acute [Not Recovered/Not Resolved]
  - Haemolytic anaemia [Not Recovered/Not Resolved]
  - Accidental overdose [Not Recovered/Not Resolved]
  - Drug administration error [Not Recovered/Not Resolved]

NARRATIVE: CASE EVENT DATE: 20140702
